FAERS Safety Report 8492149-1 (Version None)
Quarter: 2012Q3

REPORT INFORMATION
  Report Type: 
  Country: None (occurrence: None)
  Receive Date: 20120706
  Receipt Date: 20120703
  Transmission Date: 20120928
  Serious: Yes (Life-Threatening, Hospitalization, Other)
  Sender: FDA-Public Use
  Company Number: PHHY2012AR057421

PATIENT
  Sex: Female

DRUGS (1)
  1. DIOVAN [Suspect]
     Indication: CARDIAC DISORDER
     Dosage: 100 MG, DAILY

REACTIONS (2)
  - FEELING ABNORMAL [None]
  - AMNESIA [None]
